FAERS Safety Report 21386962 (Version 1)
Quarter: 2022Q3

REPORT INFORMATION
  Report Type: Spontaneous
  Country: TR (occurrence: TR)
  Receive Date: 20220928
  Receipt Date: 20220928
  Transmission Date: 20221026
  Serious: Yes (Death, Other)
  Sender: FDA-Public Use
  Company Number: TR-JNJFOC-20220955118

PATIENT

DRUGS (1)
  1. REMICADE [Suspect]
     Active Substance: INFLIXIMAB
     Indication: Behcet^s syndrome
     Route: 041

REACTIONS (24)
  - Lung adenocarcinoma [Fatal]
  - Gastrointestinal haemorrhage [Fatal]
  - Laryngeal cancer [Fatal]
  - Pulmonary hypertension [Fatal]
  - Nervous system disorder [Fatal]
  - Pulmonary haemorrhage [Fatal]
  - Pulmonary sepsis [Fatal]
  - Sepsis [Fatal]
  - Splenic infarction [Unknown]
  - Neoplasm malignant [Unknown]
  - Tuberculosis [Unknown]
  - Haemophagocytic lymphohistiocytosis [Unknown]
  - Hepatotoxicity [Unknown]
  - Lupus-like syndrome [Unknown]
  - Perichondritis [Unknown]
  - Psoriasis [Unknown]
  - Lichen planus [Unknown]
  - Ejection fraction decreased [Unknown]
  - Infusion related reaction [Unknown]
  - Infection [Unknown]
  - Drug ineffective [Unknown]
  - Exposure during pregnancy [Unknown]
  - Treatment noncompliance [Unknown]
  - Off label use [Unknown]
